FAERS Safety Report 11163893 (Version 1)
Quarter: 2015Q2

REPORT INFORMATION
  Report Type: Spontaneous
  Country: FR (occurrence: FR)
  Receive Date: 20150604
  Receipt Date: 20150604
  Transmission Date: 20150821
  Serious: Yes (Other)
  Sender: FDA-Public Use
  Company Number: FR-GILEAD-2015-0156005

PATIENT
  Age: 69 Year
  Sex: Male

DRUGS (3)
  1. RIBAVIRIN. [Concomitant]
     Active Substance: RIBAVIRIN
     Dosage: UNK
     Dates: start: 20140620, end: 20140912
  2. SOVALDI [Suspect]
     Active Substance: SOFOSBUVIR
     Indication: PRODUCT USED FOR UNKNOWN INDICATION
     Dosage: UNK
     Route: 065
     Dates: start: 20140620, end: 20140912
  3. SIMEPREVIR [Concomitant]
     Active Substance: SIMEPREVIR
     Dosage: UNK
     Dates: start: 20140620, end: 20140912

REACTIONS (2)
  - Lung adenocarcinoma [Unknown]
  - Colon cancer [Unknown]

NARRATIVE: CASE EVENT DATE: 201501
